FAERS Safety Report 6681598-X (Version None)
Quarter: 2010Q2

REPORT INFORMATION
  Report Type: 
  Country: None (occurrence: None)
  Receive Date: 20100414
  Receipt Date: 20100407
  Transmission Date: 20101027
  Serious: Yes (Hospitalization)
  Sender: FDA-Public Use
  Company Number: NL-MEDIMMUNE-MEDI-0010862

PATIENT
  Sex: Female
  Weight: 4.26 kg

DRUGS (1)
  1. SYNAGIS [Suspect]
     Route: 030
     Dates: start: 20091215, end: 20100209

REACTIONS (2)
  - HYPOPHAGIA [None]
  - RESPIRATORY TRACT INFECTION VIRAL [None]
